FAERS Safety Report 24686102 (Version 1)
Quarter: 2024Q4

REPORT INFORMATION
  Report Type: Spontaneous
  Country: US (occurrence: None)
  Receive Date: 20241129
  Receipt Date: 20241129
  Transmission Date: 20250115
  Serious: Yes (unspecified)
  Sender: Public
  Company Number: None

PATIENT
  Age: 65 Year
  Sex: Female

DRUGS (1)
  1. SKYRIZI [Suspect]
     Active Substance: RISANKIZUMAB-RZAA
     Indication: Psoriasis
     Dosage: FREQUENCY : MONTHLY;?
     Dates: start: 20241108

REACTIONS (6)
  - Night sweats [None]
  - Blood pressure increased [None]
  - Vomiting [None]
  - Chest pain [None]
  - Nausea [None]
  - Flank pain [None]
